FAERS Safety Report 8827769 (Version 1)
Quarter: 2012Q4

REPORT INFORMATION
  Report Type: 
  Country: CN (occurrence: CN)
  Receive Date: 20121005
  Receipt Date: 20121005
  Transmission Date: 20130627
  Serious: Yes (Hospitalization)
  Sender: FDA-Public Use
  Company Number: CN-JNJFOC-20121001760

PATIENT
  Age: 46 Year
  Sex: Male

DRUGS (3)
  1. TYLENOL [Suspect]
     Indication: UPPER RESPIRATORY TRACT INFECTION
     Route: 048
     Dates: start: 20090823, end: 20090827
  2. TYLENOL [Suspect]
     Indication: ANALGESIC THERAPY
     Route: 048
     Dates: start: 20090823, end: 20090827
  3. CEPHRADINE [Suspect]
     Indication: UPPER RESPIRATORY TRACT INFECTION
     Route: 065

REACTIONS (1)
  - Leukopenia [Recovered/Resolved]
